FAERS Safety Report 25542950 (Version 2)
Quarter: 2025Q3

REPORT INFORMATION
  Report Type: Spontaneous
  Country: US (occurrence: US)
  Receive Date: 20250711
  Receipt Date: 20250910
  Transmission Date: 20251021
  Serious: Yes (Hospitalization)
  Sender: SANOFI AVENTIS
  Company Number: US-SA-2025SA193856

PATIENT
  Age: 62 Year
  Sex: Male

DRUGS (1)
  1. CEREZYME [Suspect]
     Active Substance: IMIGLUCERASE
     Dosage: 11200 IU, QM
     Route: 042
     Dates: end: 2025

REACTIONS (4)
  - Somnolence [Unknown]
  - Hypotension [Unknown]
  - Dizziness [Unknown]
  - Poor venous access [Unknown]

NARRATIVE: CASE EVENT DATE: 20250903
